FAERS Safety Report 11267167 (Version 2)
Quarter: 2015Q4

REPORT INFORMATION
  Report Type: Spontaneous
  Country: US (occurrence: US)
  Receive Date: 20150713
  Receipt Date: 20151118
  Transmission Date: 20160304
  Serious: No
  Sender: FDA-Public Use
  Company Number: US-DSJP-DSU-2014-124905

PATIENT
  Age: 73 Year
  Sex: Female
  Weight: 56.69 kg

DRUGS (6)
  1. WELCHOL [Suspect]
     Active Substance: COLESEVELAM HYDROCHLORIDE
     Indication: DIARRHOEA
     Dosage: 1.875 G, QD
     Route: 048
     Dates: start: 20141005, end: 20141005
  2. WELCHOL [Suspect]
     Active Substance: COLESEVELAM HYDROCHLORIDE
     Indication: DIABETES MELLITUS
  3. WELCHOL [Suspect]
     Active Substance: COLESEVELAM HYDROCHLORIDE
     Indication: GALLBLADDER DISORDER
     Dosage: 3.75 G, QD
     Route: 048
     Dates: start: 20141003, end: 20141003
  4. WELCHOL [Suspect]
     Active Substance: COLESEVELAM HYDROCHLORIDE
     Indication: DIABETES MELLITUS
  5. WELCHOL [Suspect]
     Active Substance: COLESEVELAM HYDROCHLORIDE
     Indication: GALLBLADDER DISORDER
     Dosage: 1875 MG, QD
     Route: 048
     Dates: start: 20141004, end: 20141004
  6. WELCHOL [Suspect]
     Active Substance: COLESEVELAM HYDROCHLORIDE
     Indication: DIARRHOEA
     Dosage: 1875 MG, QD
     Route: 048
     Dates: start: 2014

REACTIONS (4)
  - Drug administration error [Not Recovered/Not Resolved]
  - Abdominal discomfort [Recovered/Resolved]
  - Flatulence [Recovering/Resolving]
  - Off label use [Not Recovered/Not Resolved]

NARRATIVE: CASE EVENT DATE: 20141003
